FAERS Safety Report 9302859 (Version 1)
Quarter: 2013Q2

REPORT INFORMATION
  Report Type: Spontaneous
  Country: US (occurrence: US)
  Receive Date: 20130522
  Receipt Date: 20130522
  Transmission Date: 20140414
  Serious: Yes (Other)
  Sender: FDA-Public Use
  Company Number: US-NAPPMUNDI-USA-2013-0099276

PATIENT
  Age: 55 Year
  Sex: Female
  Weight: 136.5 kg

DRUGS (2)
  1. BUTRANS [Suspect]
     Indication: PAIN
     Dosage: 10 MCG/HR, WEEKLY
     Route: 062
     Dates: start: 20120515
  2. BUTRANS [Suspect]
     Dosage: 5 MCG/HR, WEEKLY
     Route: 062
     Dates: end: 201302

REACTIONS (4)
  - Suicidal ideation [Recovered/Resolved]
  - Loss of consciousness [Recovered/Resolved]
  - Respiratory depression [Recovered/Resolved]
  - Dizziness [Recovered/Resolved]
